FAERS Safety Report 10549454 (Version 4)
Quarter: 2015Q2

REPORT INFORMATION
  Report Type: Spontaneous
  Country: US (occurrence: US)
  Receive Date: 20141028
  Receipt Date: 20150601
  Transmission Date: 20150821
  Serious: Yes (Life-Threatening, Hospitalization, Disabling, Other)
  Sender: FDA-Public Use
  Company Number: US-BAYER-2014-157129

PATIENT
  Age: 35 Year
  Sex: Female
  Weight: 63 kg

DRUGS (3)
  1. ORTHO CEPT [Concomitant]
     Active Substance: DESOGESTREL\ETHINYL ESTRADIOL
     Indication: CONTRACEPTION
     Dosage: UNK
     Dates: start: 1990, end: 2013
  2. MIRENA [Suspect]
     Active Substance: LEVONORGESTREL
     Indication: CONTRACEPTION
     Dosage: 20 MCG/24HR, CONT
     Route: 015
     Dates: start: 20080530, end: 20131023
  3. DEPO-PROVERA [Concomitant]
     Active Substance: MEDROXYPROGESTERONE ACETATE
     Dosage: UNK
     Dates: start: 201306, end: 201312

REACTIONS (14)
  - Gait disturbance [None]
  - Balance disorder [None]
  - General physical health deterioration [Recovered/Resolved]
  - Uterine perforation [Not Recovered/Not Resolved]
  - Drug ineffective [None]
  - Abdominal adhesions [Recovered/Resolved]
  - Device misuse [None]
  - Pregnancy with contraceptive device [None]
  - Device breakage [None]
  - Injury [Not Recovered/Not Resolved]
  - Pelvic pain [Not Recovered/Not Resolved]
  - Procedural pain [Not Recovered/Not Resolved]
  - Device issue [None]
  - Complication of device removal [None]

NARRATIVE: CASE EVENT DATE: 200806
